FAERS Safety Report 15495732 (Version 2)
Quarter: 2018Q4

REPORT INFORMATION
  Report Type: Report from Study
  Country: US (occurrence: US)
  Receive Date: 20181013
  Receipt Date: 20181106
  Transmission Date: 20190205
  Serious: Yes (Hospitalization)
  Sender: FDA-Public Use
  Company Number: PHEH2018US042020

PATIENT
  Sex: Male
  Weight: 99.79 kg

DRUGS (1)
  1. COSENTYX [Suspect]
     Active Substance: SECUKINUMAB
     Indication: PSORIASIS
     Dosage: 300 MG, QMO
     Route: 058
     Dates: start: 201808

REACTIONS (4)
  - Pain [Unknown]
  - Thrombosis [Unknown]
  - Back disorder [Unknown]
  - Limb discomfort [Unknown]
